FAERS Safety Report 13806544 (Version 4)
Quarter: 2018Q3

REPORT INFORMATION
  Report Type: Report from Study
  Country: US (occurrence: US)
  Receive Date: 20170728
  Receipt Date: 20180719
  Transmission Date: 20181010
  Serious: No
  Sender: FDA-Public Use
  Company Number: US-AMGEN-USASL2017072771

PATIENT
  Age: 65 Year
  Sex: Female

DRUGS (2)
  1. REPATHA [Suspect]
     Active Substance: EVOLOCUMAB
     Indication: LOW DENSITY LIPOPROTEIN INCREASED
     Dosage: 420 MG, QMO
     Route: 065
  2. REPATHA [Suspect]
     Active Substance: EVOLOCUMAB
     Indication: HYPERCHOLESTEROLAEMIA

REACTIONS (14)
  - Injection site swelling [Unknown]
  - Injection site bruising [Unknown]
  - Injection site vesicles [Unknown]
  - Paraesthesia [Unknown]
  - Formication [Unknown]
  - Pain in extremity [Unknown]
  - Injection site pain [Unknown]
  - Influenza like illness [Recovered/Resolved]
  - Erythema [Unknown]
  - Blood pressure decreased [Recovered/Resolved]
  - Headache [Unknown]
  - Arthralgia [Recovered/Resolved]
  - Flushing [Unknown]
  - Mobility decreased [Unknown]
